FAERS Safety Report 6691552-X (Version None)
Quarter: 2010Q2

REPORT INFORMATION
  Report Type: 
  Country: None (occurrence: None)
  Receive Date: 20100422
  Receipt Date: 20100413
  Transmission Date: 20101027
  Serious: Yes (Hospitalization, Other)
  Sender: FDA-Public Use
  Company Number: NL-TEVA-230797ISR

PATIENT
  Age: 82 Year
  Sex: Male

DRUGS (10)
  1. BUMETANIDE [Suspect]
     Indication: DYSPNOEA
     Route: 048
  2. BUMETANIDE [Concomitant]
  3. ESOMEPRAZOLE [Suspect]
     Indication: OESOPHAGITIS ULCERATIVE
     Route: 048
  4. POTASSIUM [Concomitant]
     Indication: HYPOKALAEMIA
     Route: 042
  5. POTASSIUM [Concomitant]
     Route: 048
  6. CALCIUM [Concomitant]
     Indication: HYPOCALCAEMIA
     Route: 042
  7. CALCIUM [Concomitant]
     Route: 048
  8. MAGNESIUM [Concomitant]
     Indication: HYPOMAGNESAEMIA
     Route: 042
  9. MAGNESIUM [Concomitant]
     Route: 048
  10. RANITIDINE [Concomitant]
     Indication: GASTROOESOPHAGEAL REFLUX DISEASE
     Route: 048

REACTIONS (11)
  - DIZZINESS [None]
  - DYSPNOEA [None]
  - GAIT DISTURBANCE [None]
  - HYPOCALCAEMIA [None]
  - HYPOKALAEMIA [None]
  - HYPOMAGNESAEMIA [None]
  - HYPOPARATHYROIDISM [None]
  - INTENTION TREMOR [None]
  - MUSCULAR WEAKNESS [None]
  - NAUSEA [None]
  - VOMITING [None]
